FAERS Safety Report 9407711 (Version 2)
Quarter: 2013Q3

REPORT INFORMATION
  Report Type: Report from Study
  Country: JP (occurrence: JP)
  Receive Date: 20130718
  Receipt Date: 20130805
  Transmission Date: 20140515
  Serious: Yes (Hospitalization)
  Sender: FDA-Public Use
  Company Number: JP-JNJFOC-20130402455

PATIENT
  Age: 76 Year
  Sex: Female
  Weight: 55 kg

DRUGS (17)
  1. PROGRAF [Suspect]
     Indication: RHEUMATOID ARTHRITIS
     Route: 048
     Dates: start: 20121228
  2. REMICADE [Suspect]
     Indication: RHEUMATOID ARTHRITIS
     Dosage: (300 MG).
     Route: 042
     Dates: start: 20130510
  3. REMICADE [Suspect]
     Indication: RHEUMATOID ARTHRITIS
     Dosage: (300 MG).
     Route: 042
     Dates: start: 20130322
  4. REMICADE [Suspect]
     Indication: RHEUMATOID ARTHRITIS
     Dosage: (300 MG).
     Route: 042
     Dates: start: 20130208
  5. REMICADE [Suspect]
     Indication: RHEUMATOID ARTHRITIS
     Route: 042
     Dates: start: 20121228
  6. REMICADE [Suspect]
     Indication: RHEUMATOID ARTHRITIS
     Route: 042
     Dates: start: 20121116
  7. REMICADE [Suspect]
     Indication: RHEUMATOID ARTHRITIS
     Route: 042
     Dates: start: 20121220
  8. REMICADE [Suspect]
     Indication: RHEUMATOID ARTHRITIS
     Route: 042
  9. METHOTREXATE [Suspect]
     Indication: RHEUMATOID ARTHRITIS
     Route: 048
  10. PREDNISOLONE [Suspect]
     Indication: RHEUMATOID ARTHRITIS
     Route: 048
     Dates: end: 20130208
  11. PREDNISOLONE [Suspect]
     Indication: RHEUMATOID ARTHRITIS
     Route: 048
     Dates: start: 20130209, end: 20130510
  12. LANSOPRAZOLE [Concomitant]
     Route: 065
  13. EDIROL [Concomitant]
     Route: 065
  14. FOLIAMIN [Concomitant]
     Route: 048
  15. BONALON [Concomitant]
     Route: 048
  16. MYSLEE [Concomitant]
     Route: 065
  17. LOXONIN [Concomitant]
     Route: 048

REACTIONS (1)
  - Herpes zoster [Recovered/Resolved]
